FAERS Safety Report 9684295 (Version 1)
Quarter: 2013Q4

REPORT INFORMATION
  Report Type: Spontaneous
  Country: US (occurrence: US)
  Receive Date: 20131112
  Receipt Date: 20131112
  Transmission Date: 20140711
  Serious: Yes (Life-Threatening, Other)
  Sender: FDA-Public Use
  Company Number: US-B.I. PHARMACEUTICALS,INC./RIDGEFIELD-2013-BI-36194GD

PATIENT
  Age: 7 Year
  Sex: Male

DRUGS (1)
  1. CLONIDINE [Suspect]
     Indication: ATTENTION DEFICIT/HYPERACTIVITY DISORDER
     Dosage: 4.5 G
     Route: 048

REACTIONS (8)
  - Apnoea [Recovered/Resolved]
  - Overdose [Recovered/Resolved]
  - Medication error [Recovered/Resolved]
  - Unresponsive to stimuli [Recovered/Resolved]
  - Hypertension [Recovered/Resolved]
  - Lethargy [Recovered/Resolved]
  - Miosis [Recovered/Resolved]
  - Infection [Recovered/Resolved]
